FAERS Safety Report 18245469 (Version 1)
Quarter: 2020Q3

REPORT INFORMATION
  Report Type: Spontaneous
  Country: US (occurrence: US)
  Receive Date: 20200908
  Receipt Date: 20200908
  Transmission Date: 20201103
  Serious: No
  Sender: FDA-Public Use
  Company Number: None

PATIENT
  Sex: Male

DRUGS (10)
  1. METOPROL SUC ER [Concomitant]
  2. XARELTO [Concomitant]
     Active Substance: RIVAROXABAN
  3. METHYLPRED [Concomitant]
     Active Substance: METHYLPREDNISOLONE
  4. CIPROFLOXACN [Concomitant]
     Active Substance: CIPROFLOXACIN
  5. ESBRIET [Suspect]
     Active Substance: PIRFENIDONE
     Indication: IDIOPATHIC PULMONARY FIBROSIS
     Route: 048
     Dates: start: 20200207
  6. ESZOPICLONE. [Concomitant]
     Active Substance: ESZOPICLONE
  7. PREDNISONE. [Concomitant]
     Active Substance: PREDNISONE
  8. WARFARIN [Concomitant]
     Active Substance: WARFARIN
  9. DOXYCYCL HYC [Concomitant]
  10. DILTIAZEM ER [Concomitant]
     Active Substance: DILTIAZEM

REACTIONS (1)
  - Lung transplant [None]
